FAERS Safety Report 22053581 (Version 1)
Quarter: 2023Q1

REPORT INFORMATION
  Report Type: Spontaneous
  Country: US (occurrence: None)
  Receive Date: 20230301
  Receipt Date: 20230301
  Transmission Date: 20230417
  Serious: Yes (Other)
  Sender: FDA-Public Use
  Company Number: None

PATIENT
  Age: 51 Year
  Sex: Female
  Weight: 99 kg

DRUGS (2)
  1. DUPIXENT [Suspect]
     Active Substance: DUPILUMAB
     Indication: Dermatitis atopic
     Dosage: FREQUENCY : ONCE;?
     Route: 058
     Dates: start: 20221121, end: 20230214
  2. DUPIXENT [Suspect]
     Active Substance: DUPILUMAB
     Indication: Dermatitis atopic
     Dosage: OTHER FREQUENCY : EVERY OTHER WEEK;?
     Route: 058
     Dates: start: 20221121, end: 20230214

REACTIONS (8)
  - Sinusitis [None]
  - Eczema [None]
  - Lacrimation increased [None]
  - Swelling face [None]
  - Urticaria [None]
  - Drug hypersensitivity [None]
  - Blepharitis [None]
  - Keratitis [None]

NARRATIVE: CASE EVENT DATE: 20230214
